FAERS Safety Report 25367976 (Version 1)
Quarter: 2025Q2

REPORT INFORMATION
  Report Type: Spontaneous
  Country: CN (occurrence: None)
  Receive Date: 20250528
  Receipt Date: 20250528
  Transmission Date: 20250716
  Serious: Yes (Hospitalization)
  Sender: ADAMAS PHARMA
  Company Number: CN-ADAMAS Pharma-ADM202505-001709

PATIENT
  Age: 15 Year
  Sex: Female

DRUGS (2)
  1. AMANTADINE HYDROCHLORIDE [Suspect]
     Active Substance: AMANTADINE HYDROCHLORIDE
     Indication: Product used for unknown indication
  2. ACETAMINOPHEN [Suspect]
     Active Substance: ACETAMINOPHEN
     Indication: Product used for unknown indication

REACTIONS (3)
  - Liver injury [Recovered/Resolved]
  - Pneumatosis [Recovered/Resolved]
  - Toxicity to various agents [Recovered/Resolved]
